FAERS Safety Report 13876079 (Version 1)
Quarter: 2017Q3

REPORT INFORMATION
  Report Type: Spontaneous
  Country: US (occurrence: US)
  Receive Date: 20170817
  Receipt Date: 20170817
  Transmission Date: 20171127
  Serious: No
  Sender: FDA-Public Use
  Company Number: US-PFIZER INC-2017351845

PATIENT
  Sex: Female

DRUGS (1)
  1. AZULFIDINE [Suspect]
     Active Substance: SULFASALAZINE
     Dosage: 1000 MG, 2X/DAY

REACTIONS (8)
  - Pain [Unknown]
  - Synovitis [Unknown]
  - Arthralgia [Unknown]
  - Iron deficiency anaemia [Unknown]
  - Joint contracture [Unknown]
  - Joint range of motion decreased [Unknown]
  - Musculoskeletal stiffness [Unknown]
  - Finger deformity [Unknown]
